FAERS Safety Report 10064504 (Version 2)
Quarter: 2015Q1

REPORT INFORMATION
  Report Type: Spontaneous
  Country: FR (occurrence: None)
  Receive Date: 20140404
  Receipt Date: 20150311
  Transmission Date: 20150720
  Serious: Yes (Other)
  Sender: FDA-Public Use
  Company Number: 2014-000809

PATIENT
  Age: 76 Year
  Sex: Female

DRUGS (8)
  1. INEXIUM (ESOMEPRAZOLE MAGNESIUM) (ESOMEPRAZOLE MAGNESIUM) [Concomitant]
     Active Substance: ESOMEPRAZOLE MAGNESIUM
  2. ACTONEL [Suspect]
     Active Substance: RISEDRONATE SODIUM
     Indication: OSTEOPOROSIS
     Dosage: 75MG, 2 CONSECUTIVE DAYS PER MONTH
     Route: 048
     Dates: start: 201211
  3. UNVEDOSE (COLECALCIFEROL) [Concomitant]
  4. CARTREX (ACECLOFENAC) [Concomitant]
  5. FEMARA [Suspect]
     Active Substance: LETROZOLE
     Indication: BREAST CANCER
     Route: 048
     Dates: start: 20120801, end: 20140210
  6. ZALDIAR (PARACETAMOL TRAMADOL HYDROCHLORIDE [Concomitant]
  7. FLECTOR (DICLOFENAC SODIUM) [Concomitant]
  8. DAFALGAN (PARACETAMOL) [Concomitant]

REACTIONS (1)
  - Organising pneumonia [None]

NARRATIVE: CASE EVENT DATE: 201301
